FAERS Safety Report 20506688 (Version 1)
Quarter: 2022Q1

REPORT INFORMATION
  Report Type: Spontaneous
  Country: GB (occurrence: GB)
  Receive Date: 20220223
  Receipt Date: 20220223
  Transmission Date: 20220423
  Serious: Yes (Hospitalization, Other)
  Sender: FDA-Public Use
  Company Number: None

PATIENT
  Age: 80 Year
  Sex: Female
  Weight: 53.5 kg

DRUGS (2)
  1. SIMVASTATIN [Suspect]
     Active Substance: SIMVASTATIN
     Dosage: 40 MG, 1 DAY (QD), AT NIGHT
  2. PREDNISOLONE [Suspect]
     Active Substance: PREDNISOLONE
     Indication: Anal prolapse
     Dosage: 5 MG, 1 DAY (QD)

REACTIONS (2)
  - Dizziness [Not Recovered/Not Resolved]
  - Night sweats [Unknown]
